FAERS Safety Report 4805238-7 (Version None)
Quarter: 2005Q4

REPORT INFORMATION
  Report Type: 
  Country: None (occurrence: None)
  Receive Date: 20051018
  Receipt Date: 20051012
  Transmission Date: 20060501
  Serious: Yes (Hospitalization, Other)
  Sender: FDA-Public Use
  Company Number: CHWYE050712OCT05

PATIENT
  Age: 72 Year
  Sex: Female

DRUGS (5)
  1. EFFEXOR [Suspect]
     Indication: SCHIZOPHRENIA, RESIDUAL TYPE
     Dosage: 75 MX 1X PER 1 DAY
     Route: 048
     Dates: start: 20040120, end: 20040211
  2. FLUPENTIXOL [Concomitant]
  3. DIPIPERON (PIPAMPERONE) [Concomitant]
  4. ASPIRIN PRODUCT (ACETYLSALICYLIC ACID) [Concomitant]
  5. METOPROLOL SUCCINATE [Concomitant]

REACTIONS (3)
  - DERMATITIS ALLERGIC [None]
  - PRURITUS [None]
  - RASH MACULO-PAPULAR [None]
